FAERS Safety Report 15948089 (Version 2)
Quarter: 2019Q1

REPORT INFORMATION
  Report Type: Spontaneous
  Country: US (occurrence: US)
  Receive Date: 20190211
  Receipt Date: 20190215
  Transmission Date: 20190417
  Serious: Yes (Life-Threatening, Hospitalization, Other)
  Sender: FDA-Public Use
  Company Number: US-PFIZER INC-2019055265

PATIENT
  Age: 67 Year
  Sex: Female

DRUGS (1)
  1. IBUPROFEN. [Suspect]
     Active Substance: IBUPROFEN
     Dosage: UNK, DAILY

REACTIONS (6)
  - Sepsis [Unknown]
  - Gastric haemorrhage [Recovering/Resolving]
  - Splenic artery aneurysm [Recovering/Resolving]
  - Abdominal abscess [Unknown]
  - Gastric ulcer [Recovering/Resolving]
  - Gastric perforation [Recovering/Resolving]
